FAERS Safety Report 12861129 (Version 1)
Quarter: 2016Q4

REPORT INFORMATION
  Report Type: Spontaneous
  Country: US (occurrence: US)
  Receive Date: 20161019
  Receipt Date: 20161019
  Transmission Date: 20170207
  Serious: Yes (Death)
  Sender: FDA-Public Use
  Company Number: US-CIPLA LTD.-2016US19381

PATIENT

DRUGS (4)
  1. AMISULPRIDE [Suspect]
     Active Substance: AMISULPRIDE
     Dosage: 200 MG, TID
     Route: 048
  2. FERROUS FUMARATE [Suspect]
     Active Substance: FERROUS FUMARATE
     Dosage: UNK
     Route: 065
  3. OLANZAPINE. [Suspect]
     Active Substance: OLANZAPINE
     Indication: SCHIZOPHRENIA
     Dosage: 10 MG, SINGLE DOSE
     Route: 030
  4. ZOTEPINE [Suspect]
     Active Substance: ZOTEPINE
     Dosage: 25 MG, TID
     Route: 048

REACTIONS (1)
  - Aortic aneurysm rupture [Fatal]
